FAERS Safety Report 4674079-6 (Version None)
Quarter: 2005Q2

REPORT INFORMATION
  Report Type: 
  Country: None (occurrence: None)
  Receive Date: 20050524
  Receipt Date: 20050524
  Transmission Date: 20051028
  Serious: No
  Sender: FDA-Public Use
  Company Number: None

PATIENT
  Sex: Female
  Weight: 59.8 kg

DRUGS (3)
  1. FLUOROURACIL [Suspect]
     Dosage: 300 MG/M2/DAY AS CONTINUOUS 96 HOUR INFUSION DURING RADIOTHERAPY
     Route: 042
     Dates: start: 20050425
  2. TAXOL [Suspect]
     Dosage: 50 MG/M2 IV OVER 3 HOURS, 1,8,15,22,29 FOR RADIOTHERAPY
     Route: 042
     Dates: start: 20050425
  3. RADIATION [Suspect]
     Dates: start: 20050425

REACTIONS (5)
  - BLOOD PRESSURE SYSTOLIC DECREASED [None]
  - BODY TEMPERATURE INCREASED [None]
  - DIARRHOEA [None]
  - NAUSEA [None]
  - VOMITING [None]
